FAERS Safety Report 5807193-X (Version None)
Quarter: 2008Q3

REPORT INFORMATION
  Report Type: 
  Country: None (occurrence: None)
  Receive Date: 20080711
  Receipt Date: 20080708
  Transmission Date: 20090109
  Serious: Yes (Death)
  Sender: FDA-Public Use
  Company Number: B0481305B

PATIENT
  Age: 45 Year
  Sex: Female

DRUGS (3)
  1. LAPATINIB [Suspect]
     Dosage: 1250MG PER DAY
     Route: 048
     Dates: start: 20070721
  2. CAPECITABINE [Suspect]
     Dosage: 2600MGM2 PER DAY
     Route: 048
     Dates: start: 20070721
  3. ZOLADEX [Concomitant]
     Indication: BREAST CANCER
     Dosage: 3.6MG MONTHLY
     Route: 058
     Dates: start: 20070104

REACTIONS (2)
  - ARRHYTHMIA [None]
  - CIRCULATORY COLLAPSE [None]
